FAERS Safety Report 8739747 (Version 2)
Quarter: 2015Q2

REPORT INFORMATION
  Report Type: Report from Study
  Country: US (occurrence: US)
  Receive Date: 20120823
  Receipt Date: 20150507
  Transmission Date: 20150821
  Serious: Yes (Death)
  Sender: FDA-Public Use
  Company Number: US-ROCHE-1093360

PATIENT
  Sex: Male
  Weight: 83.54 kg

DRUGS (14)
  1. TARCEVA [Suspect]
     Active Substance: ERLOTINIB HYDROCHLORIDE
     Indication: MEDICAL DEVICE COMPLICATION
  2. TARCEVA [Suspect]
     Active Substance: ERLOTINIB HYDROCHLORIDE
     Indication: IMPLANT SITE REACTION
  3. CATHFLO ACTIVASE [Suspect]
     Active Substance: ALTEPLASE
     Indication: IMPLANT SITE REACTION
  4. ALIMTA [Concomitant]
     Active Substance: PEMETREXED DISODIUM
     Route: 065
     Dates: start: 20100716
  5. ZOMETA [Concomitant]
     Active Substance: ZOLEDRONIC ACID
     Route: 065
  6. ALIMTA [Concomitant]
     Active Substance: PEMETREXED DISODIUM
     Route: 065
     Dates: start: 20100819
  7. ZOFRAN [Concomitant]
     Active Substance: ONDANSETRON HYDROCHLORIDE
     Route: 065
     Dates: start: 20100504
  8. MORPHINE [Concomitant]
     Active Substance: MORPHINE
     Route: 065
  9. CATHFLO ACTIVASE [Suspect]
     Active Substance: ALTEPLASE
     Indication: LUNG NEOPLASM MALIGNANT
  10. CATHFLO ACTIVASE [Suspect]
     Active Substance: ALTEPLASE
     Indication: FROSTBITE
  11. TARCEVA [Suspect]
     Active Substance: ERLOTINIB HYDROCHLORIDE
     Indication: FROSTBITE
  12. CATHFLO ACTIVASE [Suspect]
     Active Substance: ALTEPLASE
     Indication: GRAFT COMPLICATION
  13. TARCEVA [Suspect]
     Active Substance: ERLOTINIB HYDROCHLORIDE
     Indication: LUNG NEOPLASM MALIGNANT
     Route: 065
  14. CATHFLO ACTIVASE [Suspect]
     Active Substance: ALTEPLASE
     Indication: MEDICAL DEVICE COMPLICATION
     Dosage: SYRINGE
     Route: 042

REACTIONS (8)
  - Death [Fatal]
  - Neuropathy peripheral [Unknown]
  - Pain [Unknown]
  - Oedema [Unknown]
  - Fatigue [Unknown]
  - Asthenia [Unknown]
  - Respiratory disorder [Unknown]
  - Emotional disorder [Unknown]
